FAERS Safety Report 9478271 (Version 2)
Quarter: 2013Q3

REPORT INFORMATION
  Report Type: Spontaneous
  Country: BE (occurrence: BE)
  Receive Date: 20130827
  Receipt Date: 20130827
  Transmission Date: 20140515
  Serious: Yes (Other)
  Sender: FDA-Public Use
  Company Number: BE-JNJFOC-20090704795

PATIENT
  Age: 40 Year
  Sex: Male
  Weight: 84.5 kg

DRUGS (1)
  1. STELARA [Suspect]
     Indication: PSORIASIS
     Route: 058
     Dates: start: 20090616

REACTIONS (2)
  - Pneumonia [Recovered/Resolved]
  - Drug ineffective [Unknown]
